FAERS Safety Report 19188957 (Version 1)
Quarter: 2021Q2

REPORT INFORMATION
  Report Type: Spontaneous
  Country: US (occurrence: US)
  Receive Date: 20210423
  Receipt Date: 20210423
  Transmission Date: 20210717
  Serious: No
  Sender: FDA-Public Use
  Company Number: None

PATIENT
  Age: 11 Year
  Sex: Male
  Weight: 54 kg

DRUGS (2)
  1. METHYLPREDNOSOLONE [Concomitant]
  2. GABAPENTIN. [Suspect]
     Active Substance: GABAPENTIN
     Indication: EAR INFECTION
     Dosage: ?          QUANTITY:21 TABLET(S);?
     Dates: end: 20210411

REACTIONS (2)
  - Drug ineffective [None]
  - Depressed level of consciousness [None]
